FAERS Safety Report 10766221 (Version 1)
Quarter: 2015Q1

REPORT INFORMATION
  Report Type: Spontaneous
  Country: SE (occurrence: SE)
  Receive Date: 20150205
  Receipt Date: 20150205
  Transmission Date: 20150721
  Serious: Yes (Hospitalization)
  Sender: FDA-Public Use
  Company Number: SE-WATSON-2015-01157

PATIENT
  Age: 69 Year
  Sex: Male

DRUGS (13)
  1. HALDOL [Suspect]
     Active Substance: HALOPERIDOL
     Indication: PRODUCT USED FOR UNKNOWN INDICATION
     Dosage: UNK UNK, BID; PHARMACHIM AB
     Route: 065
     Dates: start: 20141024
  2. VISCOTEARS [Concomitant]
     Active Substance: CARBOMER
     Indication: PRODUCT USED FOR UNKNOWN INDICATION
     Dosage: UNK; 2 MG/G; LABORATOIRES THEA
     Route: 065
  3. TROMBYL [Concomitant]
     Active Substance: ASPIRIN
     Indication: PRODUCT USED FOR UNKNOWN INDICATION
     Dosage: UNK; PFIZER AB
     Route: 048
  4. BEHEPAN                            /00056201/ [Concomitant]
     Indication: PRODUCT USED FOR UNKNOWN INDICATION
     Dosage: UNK; PFIZER AB
     Route: 048
  5. HALDOL [Suspect]
     Active Substance: HALOPERIDOL
     Dosage: UNK; PHARMACHIM AB
     Route: 065
  6. ATORVASTATIN ACTAVIS               /01326102/ [Concomitant]
     Indication: PRODUCT USED FOR UNKNOWN INDICATION
     Dosage: UNK; ACTAVIS GROUP PTC EHF.
     Route: 048
  7. CIPRALEX [Concomitant]
     Active Substance: ESCITALOPRAM OXALATE
     Indication: PRODUCT USED FOR UNKNOWN INDICATION
     Dosage: UNK; PARANOVA LAKEMEDEL AB
     Route: 048
  8. STESOLID [Suspect]
     Active Substance: DIAZEPAM
     Indication: ANXIETY
     Dosage: 10 MG, DAILY
     Route: 065
     Dates: start: 20140904
  9. HALDOL [Suspect]
     Active Substance: HALOPERIDOL
     Indication: PSYCHOTIC DISORDER
     Dosage: 0.5 ML, PRN; MAH: JANSSEN-CILAG AB
     Route: 065
     Dates: start: 20141017
  10. METFORMIN BLUEFISH                 /00082702/ [Concomitant]
     Indication: PRODUCT USED FOR UNKNOWN INDICATION
     Dosage: UNK; MAH: BLUEFISH PHARMACEUTICALS AB
     Route: 048
  11. MIRTAZAPIN ACTAVIS [Concomitant]
     Active Substance: MIRTAZAPINE
     Indication: PRODUCT USED FOR UNKNOWN INDICATION
     Dosage: UNK; ACTAVIS GROUP PTC EHF.
     Route: 065
  12. TENORMIN [Concomitant]
     Active Substance: ATENOLOL
     Indication: PRODUCT USED FOR UNKNOWN INDICATION
     Dosage: UNK; PFIZER AB
     Route: 048
  13. DAIVOBET [Concomitant]
     Active Substance: BETAMETHASONE DIPROPIONATE\CALCIPOTRIENE
     Indication: PRODUCT USED FOR UNKNOWN INDICATION
     Dosage: UNK;  50 MIKROGRAM/G + 0,5 MG/G GEL; LEO PHARMA A/S
     Route: 065

REACTIONS (3)
  - Malaise [Recovered/Resolved]
  - Fatigue [Recovered/Resolved]
  - General physical health deterioration [Recovered/Resolved]

NARRATIVE: CASE EVENT DATE: 20141223
